FAERS Safety Report 22633821 (Version 1)
Quarter: 2023Q2

REPORT INFORMATION
  Report Type: Other
  Country: DE (occurrence: None)
  Receive Date: 20230623
  Receipt Date: 20230623
  Transmission Date: 20230721
  Serious: Yes (Other)
  Sender: FDA-Public Use
  Company Number: DE-Navinta LLC-000449

PATIENT
  Age: 59 Year
  Sex: Male

DRUGS (2)
  1. RIBAVIRIN [Suspect]
     Active Substance: RIBAVIRIN
     Indication: Hepatitis E
     Dosage: 400MG DAILY FOR 2 MONTHS
  2. RIBAVIRIN [Suspect]
     Active Substance: RIBAVIRIN
     Indication: Hepatitis E
     Dosage: 800 MG ONGOING FOR GREATER THAN 08 MONTHS

REACTIONS (3)
  - Hepatitis E [Unknown]
  - Disease recurrence [Unknown]
  - Therapy partial responder [Unknown]
